FAERS Safety Report 6266972-8 (Version None)
Quarter: 2009Q3

REPORT INFORMATION
  Report Type: 
  Country: None (occurrence: None)
  Receive Date: 20090714
  Receipt Date: 20090708
  Transmission Date: 20100115
  Serious: Yes (Other)
  Sender: FDA-Public Use
  Company Number: ZA-ROCHE-642783

PATIENT
  Age: 27 Year
  Sex: Male

DRUGS (5)
  1. DIAZEPAM [Suspect]
     Route: 048
  2. CLONAZEPAM [Suspect]
     Route: 065
  3. CLOZAPINE [Suspect]
     Route: 065
  4. CLOZAPINE [Suspect]
     Route: 065
  5. FLUOXETINE HCL [Suspect]
     Route: 065

REACTIONS (1)
  - CEREBRAL HYPOPERFUSION [None]
